FAERS Safety Report 10073491 (Version 1)
Quarter: 2014Q2

REPORT INFORMATION
  Report Type: Report from Study
  Country: DE (occurrence: DE)
  Receive Date: 20140411
  Receipt Date: 20140411
  Transmission Date: 20141212
  Serious: Yes (Hospitalization)
  Sender: FDA-Public Use
  Company Number: DE-ABBVIE-14P-062-1220525-00

PATIENT
  Sex: Female
  Weight: 85 kg

DRUGS (6)
  1. HUMIRA [Suspect]
     Indication: PRODUCT USED FOR UNKNOWN INDICATION
     Dates: start: 201003
  2. CONCOR [Concomitant]
     Indication: PRODUCT USED FOR UNKNOWN INDICATION
  3. LUDIOMIL [Concomitant]
     Indication: PRODUCT USED FOR UNKNOWN INDICATION
  4. TILIDIN [Concomitant]
     Indication: PRODUCT USED FOR UNKNOWN INDICATION
  5. MAGNESIUM [Concomitant]
     Indication: PRODUCT USED FOR UNKNOWN INDICATION
  6. VALORON [Concomitant]
     Indication: PRODUCT USED FOR UNKNOWN INDICATION

REACTIONS (3)
  - Anal stenosis [Recovered/Resolved]
  - Hiatus hernia [Unknown]
  - Intestinal mucosal hypertrophy [Unknown]
